FAERS Safety Report 21694653 (Version 4)
Quarter: 2023Q2

REPORT INFORMATION
  Report Type: Spontaneous
  Country: JP (occurrence: JP)
  Receive Date: 20221207
  Receipt Date: 20230426
  Transmission Date: 20230721
  Serious: Yes (Hospitalization, Other)
  Sender: FDA-Public Use
  Company Number: JP-TAKEDA-2022TJP078191

PATIENT
  Age: 76 Year
  Sex: Female
  Weight: 48.7 kg

DRUGS (8)
  1. ADCETRIS [Suspect]
     Active Substance: BRENTUXIMAB VEDOTIN
     Indication: Peripheral T-cell lymphoma unspecified
     Dosage: 88 MILLIGRAM, Q3WEEKS
     Route: 041
     Dates: start: 20221121, end: 20221121
  2. ADCETRIS [Suspect]
     Active Substance: BRENTUXIMAB VEDOTIN
     Dosage: 80 MILLIGRAM, Q3WEEKS
     Route: 041
     Dates: start: 20221213
  3. DOXORUBICIN HYDROCHLORIDE [Suspect]
     Active Substance: DOXORUBICIN HYDROCHLORIDE
     Indication: Peripheral T-cell lymphoma unspecified
     Dosage: 67 MILLIGRAM, Q3WEEKS
     Route: 042
     Dates: start: 20221117, end: 20221117
  4. DOXORUBICIN HYDROCHLORIDE [Suspect]
     Active Substance: DOXORUBICIN HYDROCHLORIDE
     Dosage: 53 MILLIGRAM, Q3WEEKS
     Route: 042
     Dates: start: 20221213, end: 20221213
  5. DOXORUBICIN HYDROCHLORIDE [Suspect]
     Active Substance: DOXORUBICIN HYDROCHLORIDE
     Dosage: 50 MILLIGRAM, Q3WEEKS
     Route: 042
     Dates: start: 20230117
  6. CYCLOPHOSPHAMIDE [Suspect]
     Active Substance: CYCLOPHOSPHAMIDE
     Indication: Peripheral T-cell lymphoma unspecified
     Dosage: 1000 MILLIGRAM, Q3WEEKS
     Route: 042
     Dates: start: 20221117, end: 20221117
  7. CYCLOPHOSPHAMIDE [Suspect]
     Active Substance: CYCLOPHOSPHAMIDE
     Dosage: 800 MILLIGRAM, Q3WEEKS
     Route: 042
     Dates: start: 20221213
  8. PREDNISOLONE [Suspect]
     Active Substance: PREDNISOLONE
     Indication: Peripheral T-cell lymphoma unspecified
     Dosage: 100 MILLIGRAM
     Route: 048
     Dates: start: 20221116

REACTIONS (2)
  - Myelosuppression [Recovered/Resolved]
  - Febrile neutropenia [Recovered/Resolved]

NARRATIVE: CASE EVENT DATE: 20221124
